FAERS Safety Report 9917833 (Version 1)
Quarter: 2014Q1

REPORT INFORMATION
  Report Type: Report from Study
  Country: BR (occurrence: BR)
  Receive Date: 20140221
  Receipt Date: 20140221
  Transmission Date: 20141002
  Serious: Yes (Hospitalization)
  Sender: FDA-Public Use
  Company Number: BR-ABBVIE-14P-020-1202007-00

PATIENT
  Age: 30 Year
  Sex: Female
  Weight: 155 kg

DRUGS (4)
  1. HUMIRA [Suspect]
     Indication: ANKYLOSING SPONDYLITIS
     Route: 058
  2. HUMIRA [Suspect]
     Route: 058
     Dates: start: 201401
  3. UNSPECIFIED MEDICATION [Concomitant]
     Indication: HYPERTENSION
  4. ALENIA [Concomitant]
     Indication: ASTHMA

REACTIONS (2)
  - Haematoma [Recovered/Resolved]
  - Drug hypersensitivity [Recovered/Resolved]
